FAERS Safety Report 5889925-8 (Version None)
Quarter: 2008Q3

REPORT INFORMATION
  Report Type: 
  Country: None (occurrence: None)
  Receive Date: 20080919
  Receipt Date: 20080912
  Transmission Date: 20090109
  Serious: Yes (Other)
  Sender: FDA-Public Use
  Company Number: PHHY2008CA21343

PATIENT
  Sex: Male

DRUGS (2)
  1. EXJADE [Suspect]
  2. DESFERAL [Suspect]

REACTIONS (1)
  - NEPHROTIC SYNDROME [None]
